FAERS Safety Report 9361283 (Version 1)
Quarter: 2013Q2

REPORT INFORMATION
  Report Type: Report from Study
  Country: US (occurrence: US)
  Receive Date: 20130621
  Receipt Date: 20130621
  Transmission Date: 20140414
  Serious: Yes (Death)
  Sender: FDA-Public Use
  Company Number: US-ACTELION-A-NJ2013-84793

PATIENT
  Age: 57 Year
  Sex: Male

DRUGS (1)
  1. VELETRI [Suspect]
     Indication: PORTOPULMONARY HYPERTENSION
     Dosage: 30 NG/KG, UNK
     Route: 041
     Dates: start: 20121012, end: 20130219

REACTIONS (1)
  - Death [Fatal]
